FAERS Safety Report 19444939 (Version 2)
Quarter: 2021Q3

REPORT INFORMATION
  Report Type: Spontaneous
  Country: DE (occurrence: DE)
  Receive Date: 20210622
  Receipt Date: 20210705
  Transmission Date: 20211014
  Serious: Yes (Disabling)
  Sender: FDA-Public Use
  Company Number: DE-ROCHE-2853393

PATIENT
  Age: 50 Year
  Sex: Female

DRUGS (4)
  1. TAVEGIL [Concomitant]
     Active Substance: CLEMASTINE FUMARATE
     Indication: PREMEDICATION
     Route: 042
     Dates: start: 201808, end: 202008
  2. PARACETAMOL [Concomitant]
     Active Substance: ACETAMINOPHEN
     Indication: PREMEDICATION
     Route: 048
     Dates: start: 201808, end: 202008
  3. OCREVUS [Suspect]
     Active Substance: OCRELIZUMAB
     Indication: RELAPSING-REMITTING MULTIPLE SCLEROSIS
     Route: 042
     Dates: start: 20180718, end: 20200813
  4. CORTISON [Concomitant]
     Active Substance: CORTISONE ACETATE
     Indication: PREMEDICATION
     Route: 042
     Dates: start: 201808, end: 202008

REACTIONS (1)
  - Breast cancer [Unknown]

NARRATIVE: CASE EVENT DATE: 202106
